FAERS Safety Report 9466126 (Version 4)
Quarter: 2013Q3

REPORT INFORMATION
  Report Type: Report from Study
  Country: US (occurrence: US)
  Receive Date: 20130820
  Receipt Date: 20130913
  Transmission Date: 20140515
  Serious: Yes (Other)
  Sender: FDA-Public Use
  Company Number: US-JNJFOC-20130711683

PATIENT
  Age: 65 Year
  Sex: Male

DRUGS (7)
  1. REMICADE [Suspect]
     Indication: PRODUCT USED FOR UNKNOWN INDICATION
     Route: 042
  2. SYNTHROID [Concomitant]
     Indication: HYPOTHYROIDISM
     Route: 065
  3. ACETYLSALICYLIC ACID [Concomitant]
     Indication: PROPHYLAXIS
     Route: 065
  4. MULTIVITAMINS [Concomitant]
     Route: 065
  5. AZATHIOPRINE [Concomitant]
     Indication: CROHN^S DISEASE
     Route: 065
  6. TRAMADOL [Concomitant]
     Indication: INTERVERTEBRAL DISC PROTRUSION
     Route: 065
  7. TRAMADOL [Concomitant]
     Indication: BACK PAIN
     Route: 065

REACTIONS (8)
  - Actinomycosis [Unknown]
  - Haemorrhage [Not Recovered/Not Resolved]
  - Cardiac failure [Not Recovered/Not Resolved]
  - Sarcoma [Unknown]
  - Increased tendency to bruise [Not Recovered/Not Resolved]
  - Keratosis pilaris [Unknown]
  - Nasopharyngitis [Not Recovered/Not Resolved]
  - Rhinorrhoea [Not Recovered/Not Resolved]
